FAERS Safety Report 14310563 (Version 2)
Quarter: 2017Q4

REPORT INFORMATION
  Report Type: Spontaneous
  Country: FR (occurrence: FR)
  Receive Date: 20171220
  Receipt Date: 20171228
  Transmission Date: 20180321
  Serious: Yes (Hospitalization)
  Sender: FDA-Public Use
  Company Number: FR-MYLANLABS-2017M1079627

PATIENT
  Sex: Male

DRUGS (23)
  1. CYTARABINE. [Suspect]
     Active Substance: CYTARABINE
     Indication: ACUTE LYMPHOCYTIC LEUKAEMIA
     Dosage: 60 MG, UNK
     Route: 042
     Dates: start: 20171101, end: 20171111
  2. CYCLOPHOSPHAMIDE. [Suspect]
     Active Substance: CYCLOPHOSPHAMIDE
     Dosage: 800 MG, UNK
     Route: 042
     Dates: start: 20171030, end: 20171030
  3. VINCRISTINE [Suspect]
     Active Substance: VINCRISTINE
     Indication: ACUTE LYMPHOCYTIC LEUKAEMIA
     Dosage: 1.3 MG, UNK
     Route: 042
  4. PARACETAMOL [Concomitant]
     Active Substance: ACETAMINOPHEN
     Indication: PYREXIA
  5. TAZOCILLINE [Concomitant]
     Active Substance: PIPERACILLIN SODIUM\TAZOBACTAM SODIUM
     Indication: FEBRILE BONE MARROW APLASIA
  6. HYDROCORTISONE. [Suspect]
     Active Substance: HYDROCORTISONE
     Indication: ACUTE LYMPHOCYTIC LEUKAEMIA
     Dosage: 15 MG, UNK
     Route: 037
     Dates: start: 20171101, end: 20171101
  7. CONTRAMAL [Concomitant]
     Active Substance: TRAMADOL HYDROCHLORIDE
     Indication: PAIN
  8. PEGASPARGASE [Suspect]
     Active Substance: PEGASPARGASE
     Indication: ACUTE LYMPHOCYTIC LEUKAEMIA
     Dosage: 1035 IU, UNK
     Route: 042
     Dates: start: 20171113, end: 20171113
  9. ZITHROMAX [Concomitant]
     Active Substance: AZITHROMYCIN DIHYDRATE
     Indication: DIARRHOEA
  10. ZOPHREN                            /00955301/ [Concomitant]
     Active Substance: ONDANSETRON
     Indication: PROPHYLAXIS OF NAUSEA AND VOMITING
  11. METHOTREXATE. [Suspect]
     Active Substance: METHOTREXATE
     Indication: ACUTE LYMPHOCYTIC LEUKAEMIA
     Dosage: 12 MG, UNK
     Route: 037
     Dates: start: 20171101, end: 20171101
  12. METHYLPREDNISOLONE. [Suspect]
     Active Substance: METHYLPREDNISOLONE
     Indication: ACUTE LYMPHOCYTIC LEUKAEMIA
     Dosage: 48 MG, UNK
     Route: 048
     Dates: start: 20171031, end: 20171112
  13. FUNGIZONE [Concomitant]
     Active Substance: AMPHOTERICIN B
     Indication: FUNGAL INFECTION
  14. BACTRIM [Concomitant]
     Active Substance: SULFAMETHOXAZOLE\TRIMETHOPRIM
     Indication: PROPHYLAXIS
     Route: 048
  15. CYTARABINE. [Suspect]
     Active Substance: CYTARABINE
     Dosage: 30 MG, UNK
     Route: 037
     Dates: start: 20171101, end: 20171101
  16. PEGASPARGASE [Suspect]
     Active Substance: PEGASPARGASE
     Dosage: 1038 IU, UNK
     Route: 042
  17. PARACETAMOL [Concomitant]
     Active Substance: ACETAMINOPHEN
     Indication: PAIN
  18. ZOPHREN                            /00955301/ [Concomitant]
     Active Substance: ONDANSETRON
     Indication: NAUSEA
  19. CYCLOPHOSPHAMIDE. [Suspect]
     Active Substance: CYCLOPHOSPHAMIDE
     Indication: ACUTE LYMPHOCYTIC LEUKAEMIA
     Dosage: 300 MG, UNK
     Route: 042
     Dates: start: 20171030, end: 20171030
  20. XALUPRINE [Suspect]
     Active Substance: MERCAPTOPURINE
     Indication: ACUTE LYMPHOCYTIC LEUKAEMIA
     Dosage: 68 MG, UNK
     Route: 048
     Dates: start: 20171030, end: 20171112
  21. LANSOYL [Concomitant]
     Active Substance: MINERAL OIL
     Indication: CONSTIPATION
  22. VANCOMYCIN [Concomitant]
     Active Substance: VANCOMYCIN
     Indication: FEBRILE BONE MARROW APLASIA
  23. CALCIUM [Concomitant]
     Active Substance: CALCIUM
     Indication: PRODUCT USED FOR UNKNOWN INDICATION

REACTIONS (1)
  - Hypersensitivity [Recovered/Resolved]

NARRATIVE: CASE EVENT DATE: 20171113
